FAERS Safety Report 26032128 (Version 2)
Quarter: 2025Q4

REPORT INFORMATION
  Report Type: Spontaneous
  Country: US (occurrence: US)
  Receive Date: 20251112
  Receipt Date: 20251122
  Transmission Date: 20260119
  Serious: Yes (Hospitalization)
  Sender: CSL BEHRING
  Company Number: US-BEH-2025193834

PATIENT
  Age: 72 Year
  Sex: Female

DRUGS (6)
  1. HIZENTRA [Suspect]
     Active Substance: HUMAN IMMUNOGLOBULIN G
     Indication: Myasthenia gravis
     Dosage: 4 G, QW
     Route: 058
     Dates: start: 201812
  2. HIZENTRA [Suspect]
     Active Substance: HUMAN IMMUNOGLOBULIN G
     Dosage: 20 G, QW
     Route: 058
     Dates: start: 201812
  3. HIZENTRA [Suspect]
     Active Substance: HUMAN IMMUNOGLOBULIN G
     Dosage: 1 G, QW
     Route: 058
     Dates: start: 201812
  4. HEPARIN [Concomitant]
     Active Substance: HEPARIN SODIUM
     Dosage: 5ML/SYR
  5. ULTOMIRIS [Concomitant]
     Active Substance: RAVULIZUMAB-CWVZ
  6. SODIUM CHLORIDE [Concomitant]
     Active Substance: SODIUM CHLORIDE
     Dosage: 50ML/BAG

REACTIONS (6)
  - Hospitalisation [Unknown]
  - Joint noise [Unknown]
  - Infection [Unknown]
  - Delirium [Unknown]
  - Disorganised speech [Unknown]
  - Off label use [Unknown]

NARRATIVE: CASE EVENT DATE: 20181201
